FAERS Safety Report 5232401-6 (Version None)
Quarter: 2007Q1

REPORT INFORMATION
  Report Type: 
  Country: None (occurrence: None)
  Receive Date: 20070207
  Receipt Date: 20070129
  Transmission Date: 20070707
  Serious: Yes (Other)
  Sender: FDA-Public Use
  Company Number: NL-JNJFOC-20070200469

PATIENT
  Age: 44 Year
  Sex: Male

DRUGS (5)
  1. REMICADE [Suspect]
     Indication: ANKYLOSING SPONDYLITIS
     Route: 042
  2. SULFASALAZINE [Concomitant]
     Route: 065
  3. METHOTREXATE [Concomitant]
     Route: 058
  4. METHOTREXATE [Concomitant]
     Route: 058
  5. SALOFALK [Concomitant]
     Route: 065

REACTIONS (2)
  - INVESTIGATION [None]
  - LUNG NEOPLASM MALIGNANT [None]
